FAERS Safety Report 4609100-4 (Version None)
Quarter: 2005Q1

REPORT INFORMATION
  Report Type: 
  Country: None (occurrence: None)
  Receive Date: 20050311
  Receipt Date: 20050307
  Transmission Date: 20050727
  Serious: Yes (Other)
  Sender: FDA-Public Use
  Company Number: 209960

PATIENT
  Age: 54 Year
  Sex: Female
  Weight: 81.2 kg

DRUGS (5)
  1. XOLAIR [Suspect]
     Indication: ASTHMA
     Dosage: 225 MG, 1/MONTH, SUBCUTANEOUS
     Route: 058
     Dates: start: 20040602, end: 20041012
  2. ADVAIR (SALMETEROL XINAFOATE, FLUTICASONE PROPIONATE) [Concomitant]
  3. FLONASE [Concomitant]
  4. ALLEGRA [Concomitant]
  5. LEXAPRO [Concomitant]

REACTIONS (2)
  - ANAPHYLACTIC REACTION [None]
  - SINUSITIS [None]
